FAERS Safety Report 8463872-X (Version None)
Quarter: 2012Q2

REPORT INFORMATION
  Report Type: 
  Country: None (occurrence: None)
  Receive Date: 20120625
  Receipt Date: 20120615
  Transmission Date: 20120825
  Serious: Yes (Hospitalization, Other)
  Sender: FDA-Public Use
  Company Number: US-ASTRAZENECA-2010SE37063

PATIENT
  Age: 63 Year
  Sex: Male
  Weight: 70.3 kg

DRUGS (14)
  1. OMEPRAZOLE [Concomitant]
     Route: 048
  2. ALBUTEROL [Concomitant]
  3. TRAZODONE HCL [Concomitant]
  4. PROVENTIL [Concomitant]
  5. NEXIUM [Suspect]
     Indication: GASTROOESOPHAGEAL REFLUX DISEASE
     Route: 048
     Dates: start: 20050101
  6. ADVAIR DISKUS 100/50 [Concomitant]
  7. SYMBICORT [Suspect]
     Indication: CHRONIC OBSTRUCTIVE PULMONARY DISEASE
     Dosage: 320 MCG: 160/4.5 MCG, TWO TIMES A DAY.
     Route: 055
     Dates: start: 20080101
  8. PRAVASTATIN [Concomitant]
  9. METFORMIN HCL [Concomitant]
  10. LISINOPRIL [Concomitant]
     Route: 048
  11. FLUOXETINE [Concomitant]
  12. FAMOTIDINE [Concomitant]
  13. CYCLOBENZAPRINE [Concomitant]
  14. SPIRIVA [Concomitant]

REACTIONS (3)
  - WHITE BLOOD CELL COUNT DECREASED [None]
  - NEOPLASM MALIGNANT [None]
  - TONSIL CANCER [None]
